FAERS Safety Report 19544755 (Version 4)
Quarter: 2021Q3

REPORT INFORMATION
  Report Type: Spontaneous
  Country: GB (occurrence: GB)
  Receive Date: 20210713
  Receipt Date: 20210910
  Transmission Date: 20211014
  Serious: Yes (Hospitalization, Other)
  Sender: FDA-Public Use
  Company Number: GB-PFIZER INC-2019547034

PATIENT
  Age: 7 Year
  Sex: Male

DRUGS (15)
  1. TRAMADOL HCL [Suspect]
     Active Substance: TRAMADOL HYDROCHLORIDE
     Dosage: 50 MILLIGRAM, QD
     Route: 065
  2. LANSOPRAZOLE. [Suspect]
     Active Substance: LANSOPRAZOLE
     Dosage: 15 MILLIGRAM, QD
     Route: 065
  3. TRAMADOL HCL [Suspect]
     Active Substance: TRAMADOL HYDROCHLORIDE
     Dosage: 100 MILLIGRAM, QD
     Route: 065
  4. LANSOPRAZOLE. [Suspect]
     Active Substance: LANSOPRAZOLE
     Dosage: 2.5 MG, 1X/DAY
     Route: 065
  5. TRAMADOL HCL [Suspect]
     Active Substance: TRAMADOL HYDROCHLORIDE
     Dosage: 50 MG, 1X/DAY
     Route: 065
  6. DUTASTERIDE. [Suspect]
     Active Substance: DUTASTERIDE
     Dosage: 500 MICROGRAM, QD
     Route: 065
  7. VANCOMYCIN HCL [Suspect]
     Active Substance: VANCOMYCIN HYDROCHLORIDE
     Dosage: UNK
     Route: 065
  8. ALFUZOSIN HYDROCHLORIDE. [Suspect]
     Active Substance: ALFUZOSIN HYDROCHLORIDE
     Dosage: 10 MILLIGRAM, QD
     Route: 065
  9. ALFUZOSIN HYDROCHLORIDE. [Suspect]
     Active Substance: ALFUZOSIN HYDROCHLORIDE
     Dosage: 10 MILLIGRAM, QD
     Route: 065
  10. LANSOPRAZOLE. [Suspect]
     Active Substance: LANSOPRAZOLE
     Dosage: 15 MILLIGRAM, QD
     Route: 065
  11. BISOPROLOL FUMARATE. [Suspect]
     Active Substance: BISOPROLOL FUMARATE
     Dosage: 2.5 MILLIGRAM, QD
     Route: 065
  12. TRAMADOL HCL [Suspect]
     Active Substance: TRAMADOL HYDROCHLORIDE
     Dosage: UNK UNK, QOD  (ONCE EVERY 2 DAYS)
     Route: 065
  13. DAPTOMYCIN. [Suspect]
     Active Substance: DAPTOMYCIN
     Dosage: UNK
     Route: 042
  14. BISOPROLOL FUMARATE. [Suspect]
     Active Substance: BISOPROLOL FUMARATE
     Dosage: 2.5 MILLIGRAM, QD
     Route: 065
  15. DUTASTERIDE. [Suspect]
     Active Substance: DUTASTERIDE
     Dosage: 500 MICROGRAM, QD
     Route: 065

REACTIONS (13)
  - Product dispensing error [Unknown]
  - Lower respiratory tract infection [Unknown]
  - Product storage error [Unknown]
  - Antimicrobial susceptibility test resistant [Unknown]
  - Drug dispensed to wrong patient [Unknown]
  - Product administration error [Unknown]
  - Off label use [Unknown]
  - Therapeutic response delayed [Unknown]
  - Wrong patient received product [Unknown]
  - Malaise [Unknown]
  - Therapy non-responder [Unknown]
  - Wrong product administered [Unknown]
  - Drug ineffective for unapproved indication [Unknown]
